FAERS Safety Report 4299870-X (Version None)
Quarter: 2004Q1

REPORT INFORMATION
  Report Type: 
  Country: None (occurrence: None)
  Receive Date: 20040217
  Receipt Date: 20040202
  Transmission Date: 20041129
  Serious: Yes (Other)
  Sender: FDA-Public Use
  Company Number: 2004006842

PATIENT
  Age: 58 Year
  Sex: Female
  Weight: 90.7194 kg

DRUGS (1)
  1. ZOLOFT [Suspect]
     Indication: DEPRESSION
     Dosage: 100MG (DAILY) ORAL
     Route: 048
     Dates: start: 20030901

REACTIONS (6)
  - CARCINOMA [None]
  - FATIGUE [None]
  - LETHARGY [None]
  - NAUSEA [None]
  - NIGHTMARE [None]
  - TINNITUS [None]
